FAERS Safety Report 7523945-2 (Version None)
Quarter: 2011Q2

REPORT INFORMATION
  Report Type: 
  Country: None (occurrence: None)
  Receive Date: 20110603
  Receipt Date: 20110525
  Transmission Date: 20111010
  Serious: Yes (Hospitalization, Other)
  Sender: FDA-Public Use
  Company Number: CA-GENENTECH-319549

PATIENT
  Sex: Female

DRUGS (3)
  1. RITUXAN [Suspect]
     Dosage: UNK
     Route: 042
  2. RITUXAN [Suspect]
     Dosage: 550 MG, UNK
     Route: 042
     Dates: start: 20110519, end: 20110519
  3. RITUXAN [Suspect]
     Indication: AUTOIMMUNE THROMBOCYTOPENIA
     Dosage: 555 MG, UNK
     Route: 042

REACTIONS (2)
  - DELIRIUM [None]
  - CONVULSION [None]
